FAERS Safety Report 13794128 (Version 1)
Quarter: 2017Q3

REPORT INFORMATION
  Report Type: Spontaneous
  Country: FR (occurrence: FR)
  Receive Date: 20170726
  Receipt Date: 20170726
  Transmission Date: 20171127
  Serious: Yes (Hospitalization)
  Sender: FDA-Public Use
  Company Number: FR-ROCHE-1966739

PATIENT
  Age: 33 Year
  Sex: Male

DRUGS (3)
  1. PEGASYS [Suspect]
     Active Substance: PEGINTERFERON ALFA-2A
     Indication: THROMBOCYTOSIS
     Route: 058
     Dates: start: 20170313, end: 20170515
  2. CEFOXITIN [Suspect]
     Active Substance: CEFOXITIN SODIUM
     Indication: INFECTION
     Route: 042
     Dates: start: 20170419, end: 20170511
  3. DALACINE [Suspect]
     Active Substance: CLINDAMYCIN HYDROCHLORIDE
     Indication: INFECTION
     Route: 042
     Dates: start: 20170419, end: 20170511

REACTIONS (6)
  - Pyrexia [Recovered/Resolved]
  - Hepatocellular injury [Recovered/Resolved]
  - Dermatitis exfoliative [Recovered/Resolved]
  - Thrombocytopenia [Recovered/Resolved]
  - Product use in unapproved indication [Unknown]
  - Off label use [Unknown]

NARRATIVE: CASE EVENT DATE: 20170509
